FAERS Safety Report 10056408 (Version 1)
Quarter: 2014Q2

REPORT INFORMATION
  Report Type: Report from Study
  Country: DE (occurrence: DE)
  Receive Date: 20140403
  Receipt Date: 20140403
  Transmission Date: 20141212
  Serious: Yes (Other)
  Sender: FDA-Public Use
  Company Number: DE-BAYER-2014-048158

PATIENT
  Age: 54 Year
  Sex: Female

DRUGS (1)
  1. BETAFERON [Suspect]
     Indication: MULTIPLE SCLEROSIS
     Dosage: 125 ?G, QOD
     Route: 058
     Dates: start: 19950901

REACTIONS (2)
  - Pneumonia [Recovered/Resolved]
  - Lung disorder [Not Recovered/Not Resolved]
